FAERS Safety Report 13305725 (Version 1)
Quarter: 2017Q1

REPORT INFORMATION
  Report Type: Spontaneous
  Country: US (occurrence: US)
  Receive Date: 20170308
  Receipt Date: 20170308
  Transmission Date: 20170428
  Serious: No
  Sender: FDA-Public Use
  Company Number: None

PATIENT
  Age: 11 Year
  Sex: Male
  Weight: 42.3 kg

DRUGS (5)
  1. AZITHROMYCIN ANHYDROUS. [Concomitant]
     Active Substance: AZITHROMYCIN ANHYDROUS
  2. PREDNISONE. [Concomitant]
     Active Substance: PREDNISONE
  3. ZRYTEC [Concomitant]
  4. NEBULIZER - ALBUTEROL SUL/SOLN [Concomitant]
  5. CEFDINIR 300 MG [Suspect]
     Active Substance: CEFDINIR
     Indication: EAR INFECTION
     Dosage: ?          QUANTITY:1 TABLET(S);?EVERY 12 HOURS ORAL
     Route: 048
     Dates: start: 20170306, end: 20170306

REACTIONS (5)
  - Hypoaesthesia [None]
  - Urticaria [None]
  - Cough [None]
  - Wheezing [None]
  - Feeling hot [None]

NARRATIVE: CASE EVENT DATE: 20170307
